FAERS Safety Report 5599362-1 (Version None)
Quarter: 2008Q1

REPORT INFORMATION
  Report Type: 
  Country: None (occurrence: None)
  Receive Date: 20080122
  Receipt Date: 20080114
  Transmission Date: 20080703
  Serious: Yes (Other)
  Sender: FDA-Public Use
  Company Number: NL-PFIZER INC-2007068264

PATIENT
  Sex: Female
  Weight: 62 kg

DRUGS (5)
  1. EPIRUBICIN HYDROCHLORIDE [Suspect]
     Indication: BREAST CANCER
     Dosage: DAILY DOSE:80MG
     Dates: start: 20010504, end: 20010706
  2. DOCETAXEL [Suspect]
     Indication: BREAST CANCER
     Dosage: DAILY DOSE:165MG
  3. DOCETAXEL [Suspect]
     Dosage: DAILY DOSE:125MG
  4. DOCETAXEL [Suspect]
     Dosage: DAILY DOSE:125MG
  5. TAMOXIFEN [Suspect]
     Indication: BREAST CANCER
     Dosage: DAILY DOSE:20MG
     Dates: start: 20010504, end: 20030715

REACTIONS (1)
  - BREAST CANCER [None]
